FAERS Safety Report 5167120-8 (Version None)
Quarter: 2006Q4

REPORT INFORMATION
  Report Type: 
  Country: None (occurrence: None)
  Receive Date: 20061207
  Receipt Date: 20061201
  Transmission Date: 20070319
  Serious: Yes (Hospitalization)
  Sender: FDA-Public Use
  Company Number: FR-GLAXOSMITHKLINE-B0449438A

PATIENT
  Sex: Female

DRUGS (3)
  1. LAMICTAL [Suspect]
     Indication: EPILEPSY
     Dosage: 200MG PER DAY
  2. FOLIC ACID [Concomitant]
  3. LEVOTHYROXINE SODIUM [Concomitant]
     Dosage: 100MCG PER DAY

REACTIONS (4)
  - AREFLEXIA [None]
  - DRUG EXPOSURE DURING PREGNANCY [None]
  - HYPOREFLEXIA [None]
  - HYPOTONIA NEONATAL [None]
